FAERS Safety Report 7953914-X (Version None)
Quarter: 2011Q4

REPORT INFORMATION
  Report Type: 
  Country: None (occurrence: None)
  Receive Date: 20111202
  Receipt Date: 20111124
  Transmission Date: 20120403
  Serious: Yes (Other)
  Sender: FDA-Public Use
  Company Number: JP-BRISTOL-MYERS SQUIBB COMPANY-15809932

PATIENT
  Age: 55 Year
  Sex: Male

DRUGS (8)
  1. PREDNISOLONE [Concomitant]
     Dosage: 31MAY11-27JUN11(20MG),28JUN11-20JUL11(15MG),21JUL11-ONG(10MG).
     Route: 048
     Dates: start: 20110531
  2. SPRYCEL [Suspect]
     Indication: CHRONIC MYELOID LEUKAEMIA
     Dosage: 8SEP-14OCT10(100MG),15OCT-26DEC10(50MG),27DEC10-24MAY11(100MG),21SEP11(20MG),22SEP-17OCT11(40MG).
     Route: 048
     Dates: start: 20100908, end: 20110523
  3. LASIX [Concomitant]
     Dosage: TAB
     Route: 048
     Dates: start: 20110524, end: 20110621
  4. ANTEBATE [Concomitant]
     Dosage: ANTEBATE OINTMENT
     Dates: start: 20110513, end: 20110614
  5. MICARDIS [Concomitant]
     Dosage: TAB
     Route: 048
  6. LIPITOR [Concomitant]
     Dosage: TAB
     Route: 048
  7. URSO 250 [Concomitant]
     Dosage: TAB
     Route: 048
     Dates: start: 20110607, end: 20110620
  8. DILTIAZEM HCL [Concomitant]
     Dosage: CAP
     Route: 048

REACTIONS (3)
  - PLEURAL EFFUSION [None]
  - INTERSTITIAL LUNG DISEASE [None]
  - LIVER DISORDER [None]
